FAERS Safety Report 5473982-7 (Version None)
Quarter: 2007Q3

REPORT INFORMATION
  Report Type: 
  Country: None (occurrence: None)
  Receive Date: 20070830
  Receipt Date: 20070228
  Transmission Date: 20080115
  Serious: Yes (Other)
  Sender: FDA-Public Use
  Company Number: 234381

PATIENT
  Age: 45 Year
  Sex: Male

DRUGS (11)
  1. XOLAIR [Suspect]
     Indication: ASTHMA
     Dosage: 150 MG, SUBCUTANEOUS
     Route: 058
     Dates: start: 20060815
  2. VOLMAX (ALBUTEROL/ALBUTEROL SULFATE) [Concomitant]
  3. SINGULAIR [Concomitant]
  4. CARDIZEM [Concomitant]
  5. ALLEGRA (FEXOFENADINE HYDROCHLORIDE) [Concomitant]
  6. THEOPHYLLINE [Concomitant]
  7. TILADE [Concomitant]
  8. PULMICORT [Concomitant]
  9. DURATUSS (GUAIFENESIN, PHENYLEPHRINE HYDROCHLORIDE) [Concomitant]
  10. CELEBREX [Concomitant]
  11. XOPENEX [Concomitant]

REACTIONS (1)
  - PROSTATE CANCER [None]
